FAERS Safety Report 20485677 (Version 2)
Quarter: 2022Q1

REPORT INFORMATION
  Report Type: Report from Study
  Country: IL (occurrence: IL)
  Receive Date: 20220217
  Receipt Date: 20220312
  Transmission Date: 20220424
  Serious: Yes (Hospitalization)
  Sender: FDA-Public Use
  Company Number: IL-TAKEDA-2022TUS010845

PATIENT
  Age: 59 Year
  Sex: Male

DRUGS (11)
  1. VELAGLUCERASE ALFA [Suspect]
     Active Substance: VELAGLUCERASE ALFA
     Indication: Gaucher^s disease
     Dosage: 15 MICROGRAM/KILOGRAM, Q2WEEKS
     Route: 065
     Dates: start: 20091103, end: 201008
  2. VELAGLUCERASE ALFA [Suspect]
     Active Substance: VELAGLUCERASE ALFA
     Dosage: 30 MICROGRAM/KILOGRAM, Q2WEEKS
     Route: 065
     Dates: start: 201203, end: 201209
  3. VELAGLUCERASE ALFA [Suspect]
     Active Substance: VELAGLUCERASE ALFA
     Dosage: 15 INTERNATIONAL UNIT/KILOGRAM, Q2WEEKS
     Route: 065
     Dates: start: 20091103, end: 201008
  4. VELAGLUCERASE ALFA [Suspect]
     Active Substance: VELAGLUCERASE ALFA
     Dosage: 30 INTERNATIONAL UNIT/KILOGRAM, Q2WEEKS
     Route: 065
     Dates: start: 201203, end: 201209
  5. ASPIRIN [Concomitant]
     Active Substance: ASPIRIN
     Indication: Cerebrovascular accident
     Dosage: 100 MILLIGRAM, QD
     Route: 048
     Dates: start: 20210716, end: 20210806
  6. PLAVIX [Concomitant]
     Active Substance: CLOPIDOGREL BISULFATE
     Indication: Cerebrovascular accident
     Dosage: 75 UNK, QD
     Route: 048
     Dates: start: 20210716, end: 20210806
  7. BRILINTA [Concomitant]
     Active Substance: TICAGRELOR
     Indication: Transient ischaemic attack
     Dosage: 90 MILLIGRAM, QD
     Route: 048
     Dates: start: 20210721, end: 20210721
  8. REMDESIVIR [Concomitant]
     Active Substance: REMDESIVIR
     Indication: COVID-19
     Dosage: UNK
     Route: 050
     Dates: start: 20220119, end: 20220122
  9. DEXAMETHASONE [Concomitant]
     Active Substance: DEXAMETHASONE
     Indication: COVID-19
     Dosage: 6 MILLIGRAM
     Route: 065
     Dates: start: 20220119, end: 20220121
  10. ROCEPHIN [Concomitant]
     Active Substance: CEFTRIAXONE SODIUM
     Indication: COVID-19
     Dosage: 1 MILLIGRAM
     Route: 065
     Dates: start: 20220119, end: 202201
  11. ENOXAPARIN SODIUM [Concomitant]
     Active Substance: ENOXAPARIN SODIUM
     Indication: COVID-19
     Dosage: UNK
     Route: 065
     Dates: start: 20220119, end: 20220119

REACTIONS (1)
  - COVID-19 [Recovered/Resolved]

NARRATIVE: CASE EVENT DATE: 20220119
